FAERS Safety Report 5625074-1 (Version None)
Quarter: 2008Q1

REPORT INFORMATION
  Report Type: 
  Country: None (occurrence: None)
  Receive Date: 20080208
  Receipt Date: 20080205
  Transmission Date: 20080703
  Serious: Yes (Hospitalization)
  Sender: FDA-Public Use
  Company Number: 100#08#2008-00548

PATIENT
  Age: 48 Year
  Sex: Female

DRUGS (7)
  1. CEFTAZIDIME SODIUM [Suspect]
     Indication: ACUTE MYELOID LEUKAEMIA
  2. CIPROFLOXACIN [Suspect]
     Indication: ACUTE MYELOID LEUKAEMIA
  3. DEXAMETHASONE TAB [Suspect]
     Indication: ACUTE MYELOID LEUKAEMIA
  4. GENTAMICIN SULPHATE (GENTAMICIN) [Suspect]
     Indication: DRUG USE FOR UNKNOWN INDICATION
  5. AMIKACIN [Concomitant]
  6. VANCOMYCIN [Concomitant]
  7. TRETINOIN (ALL-TRANS RETINOIC ACID) [Concomitant]

REACTIONS (13)
  - BLOOD CULTURE POSITIVE [None]
  - CONTUSION [None]
  - CULTURE POSITIVE [None]
  - ECTHYMA [None]
  - HAEMOGLOBIN DECREASED [None]
  - KLEBSIELLA INFECTION [None]
  - LETHARGY [None]
  - MALAISE [None]
  - NEUTROPENIA [None]
  - PLATELET COUNT DECREASED [None]
  - PSEUDOMONAS INFECTION [None]
  - STAPHYLOCOCCAL INFECTION [None]
  - WHITE BLOOD CELL COUNT DECREASED [None]
